FAERS Safety Report 24086329 (Version 2)
Quarter: 2024Q3

REPORT INFORMATION
  Report Type: Spontaneous
  Country: FR (occurrence: FR)
  Receive Date: 20240712
  Receipt Date: 20240821
  Transmission Date: 20241017
  Serious: Yes (Hospitalization)
  Sender: MERCK
  Company Number: None

PATIENT
  Age: 86 Year
  Sex: Male
  Weight: 60 kg

DRUGS (8)
  1. ERTAPENEM SODIUM [Suspect]
     Active Substance: ERTAPENEM SODIUM
     Indication: Infection
     Route: 042
     Dates: start: 20240527, end: 20240605
  2. INNOHEP [Suspect]
     Active Substance: TINZAPARIN SODIUM
     Indication: Superficial vein thrombosis
     Dosage: 11000 INTERNATIONAL UNIT, QD
     Route: 058
     Dates: start: 20240523, end: 20240605
  3. AMIKACIN [Suspect]
     Active Substance: AMIKACIN
     Indication: Infection
     Dosage: 500 MILLIGRAM, ONCE
     Route: 042
     Dates: start: 20240602, end: 20240602
  4. AMIKACIN [Suspect]
     Active Substance: AMIKACIN
     Dosage: 500 MILLIGRAM, ONCE
     Route: 042
     Dates: start: 20240606, end: 20240606
  5. AMIKACIN [Suspect]
     Active Substance: AMIKACIN
     Dosage: 950 MILLIGRAM, ONCE
     Route: 042
     Dates: start: 20240508, end: 20240508
  6. OXAZEPAM [Suspect]
     Active Substance: OXAZEPAM
     Indication: Anxiety
     Dosage: 30 MILLIGRAM, QD
     Route: 048
     Dates: start: 20240606, end: 20240612
  7. OXAZEPAM [Suspect]
     Active Substance: OXAZEPAM
     Dosage: 10 MILLIGRAM, QD
     Route: 048
     Dates: start: 20240525, end: 20240605
  8. PROPRANOLOL [Concomitant]
     Active Substance: PROPRANOLOL HYDROCHLORIDE
     Indication: Cardiovascular event prophylaxis
     Dosage: UNK
     Route: 048
     Dates: start: 20240531

REACTIONS (1)
  - Confusional state [Recovered/Resolved]

NARRATIVE: CASE EVENT DATE: 20240605
